FAERS Safety Report 4888404-4 (Version None)
Quarter: 2006Q1

REPORT INFORMATION
  Report Type: 
  Country: None (occurrence: None)
  Receive Date: 20060119
  Receipt Date: 20060112
  Transmission Date: 20060701
  Serious: Yes (Death, Hospitalization)
  Sender: FDA-Public Use
  Company Number: 2006-US-00339

PATIENT
  Age: 44 Year
  Sex: Male

DRUGS (1)
  1. CLOZAPINE [Suspect]
     Indication: SCHIZOPHRENIA, UNDIFFERENTIATED TYPE
     Dosage: D, ORAL
     Route: 048
     Dates: start: 19991101, end: 20051101

REACTIONS (3)
  - HYPOXIA [None]
  - INCORRECT DOSE ADMINISTERED [None]
  - RESPIRATORY FAILURE [None]
